FAERS Safety Report 9250014 (Version 3)
Quarter: 2014Q4

REPORT INFORMATION
  Report Type: Spontaneous
  Country: US (occurrence: US)
  Receive Date: 20130424
  Receipt Date: 20141127
  Transmission Date: 20150529
  Serious: Yes (Hospitalization, Disabling, Other)
  Sender: FDA-Public Use
  Company Number: US-ASTRAZENECA-2013SE27312

PATIENT
  Age: 33 Year
  Sex: Male
  Weight: 79.4 kg

DRUGS (13)
  1. NEXIUM [Suspect]
     Active Substance: ESOMEPRAZOLE MAGNESIUM
     Indication: GASTROOESOPHAGEAL REFLUX DISEASE
     Route: 048
     Dates: end: 2007
  2. ZANTAC [Concomitant]
     Active Substance: RANITIDINE HYDROCHLORIDE
     Dates: start: 2002, end: 2012
  3. NEXIUM [Suspect]
     Active Substance: ESOMEPRAZOLE MAGNESIUM
     Indication: GASTROOESOPHAGEAL REFLUX DISEASE
     Dosage: 20-40 MG
     Route: 048
     Dates: start: 2003
  4. NEXIUM [Suspect]
     Active Substance: ESOMEPRAZOLE MAGNESIUM
     Indication: GASTROOESOPHAGEAL REFLUX DISEASE
     Dosage: ONE TIMES A DAY
     Route: 048
     Dates: start: 1997
  5. PREVACID [Concomitant]
     Active Substance: LANSOPRAZOLE
     Dates: start: 1999, end: 2006
  6. NEXIUM [Suspect]
     Active Substance: ESOMEPRAZOLE MAGNESIUM
     Indication: GASTROOESOPHAGEAL REFLUX DISEASE
     Route: 048
     Dates: start: 2010
  7. NEXIUM [Suspect]
     Active Substance: ESOMEPRAZOLE MAGNESIUM
     Indication: GASTROOESOPHAGEAL REFLUX DISEASE
     Route: 048
     Dates: start: 20120605
  8. NEXIUM [Suspect]
     Active Substance: ESOMEPRAZOLE MAGNESIUM
     Indication: GASTROOESOPHAGEAL REFLUX DISEASE
     Route: 048
     Dates: start: 2007, end: 2010
  9. ACIPHEX [Concomitant]
     Active Substance: RABEPRAZOLE SODIUM
     Dates: start: 2002, end: 2012
  10. LIPITOR [Concomitant]
     Active Substance: ATORVASTATIN CALCIUM
     Indication: BLOOD CHOLESTEROL ABNORMAL
  11. NEXIUM [Suspect]
     Active Substance: ESOMEPRAZOLE MAGNESIUM
     Indication: GASTROOESOPHAGEAL REFLUX DISEASE
     Route: 048
     Dates: start: 200112
  12. NEXIUM [Suspect]
     Active Substance: ESOMEPRAZOLE MAGNESIUM
     Indication: GASTROOESOPHAGEAL REFLUX DISEASE
     Route: 048
     Dates: start: 2007
  13. PRILOSEC [Suspect]
     Active Substance: OMEPRAZOLE MAGNESIUM
     Dosage: 20-40 MG
     Route: 048
     Dates: start: 1997

REACTIONS (17)
  - Osteoporosis [Unknown]
  - Spinal fracture [Unknown]
  - Bone pain [Unknown]
  - Dyspnoea [Unknown]
  - Bone disorder [Unknown]
  - Cholangiocarcinoma [Unknown]
  - Malaise [Unknown]
  - Depression [Unknown]
  - Arthritis [Unknown]
  - Urine abnormality [Unknown]
  - Hepatic cancer [Unknown]
  - Gastrooesophageal reflux disease [Unknown]
  - Abdominal discomfort [Unknown]
  - Lumbar vertebral fracture [Unknown]
  - Neoplasm malignant [Unknown]
  - Multiple fractures [Unknown]
  - Back pain [Unknown]

NARRATIVE: CASE EVENT DATE: 1998
